FAERS Safety Report 9304437 (Version 1)
Quarter: 2013Q2

REPORT INFORMATION
  Report Type: Spontaneous
  Country: TW (occurrence: TW)
  Receive Date: 20130522
  Receipt Date: 20130522
  Transmission Date: 20140414
  Serious: Yes (Other)
  Sender: FDA-Public Use
  Company Number: TW-ELI_LILLY_AND_COMPANY-TW201305003605

PATIENT
  Age: 21 Year
  Sex: Male

DRUGS (1)
  1. STRATTERA [Suspect]
     Dosage: 18 MG, QD
     Route: 065

REACTIONS (4)
  - Self injurious behaviour [Unknown]
  - Contusion [Unknown]
  - Anger [Unknown]
  - Irritability [Unknown]
